FAERS Safety Report 9941727 (Version 1)
Quarter: 2014Q1

REPORT INFORMATION
  Report Type: Spontaneous
  Country: US (occurrence: US)
  Receive Date: 20140303
  Receipt Date: 20140303
  Transmission Date: 20141002
  Serious: No
  Sender: FDA-Public Use
  Company Number: US-ABBVIE-13P-163-1040073-00

PATIENT
  Sex: Female

DRUGS (2)
  1. HUMIRA [Suspect]
     Indication: PSORIASIS
     Dates: start: 200905, end: 20101226
  2. HUMIRA [Suspect]
     Indication: CROHN^S DISEASE

REACTIONS (4)
  - Eczema [Recovering/Resolving]
  - Eczema infected [Recovering/Resolving]
  - Skin fissures [Unknown]
  - Seborrhoeic dermatitis [Recovering/Resolving]
